FAERS Safety Report 8528437-X (Version None)
Quarter: 2012Q3

REPORT INFORMATION
  Report Type: 
  Country: None (occurrence: None)
  Receive Date: 20120722
  Receipt Date: 20120711
  Transmission Date: 20120928
  Serious: Yes (Other)
  Sender: FDA-Public Use
  Company Number: JP-AMGEN-JPNSP2012044175

PATIENT
  Sex: Female

DRUGS (2)
  1. PREDNISOLONE [Concomitant]
     Dosage: 10 MG, 5MG IN THE MORNING AND 5 MG IN AFTERNOON
  2. ENBREL [Suspect]
     Indication: RHEUMATOID ARTHRITIS
     Dosage: UNK

REACTIONS (6)
  - LABORATORY TEST ABNORMAL [None]
  - PLEURAL EFFUSION [None]
  - PAIN [None]
  - TUBERCULOUS PLEURISY [None]
  - INSOMNIA [None]
  - TUBERCULOSIS [None]
